FAERS Safety Report 24920426 (Version 3)
Quarter: 2025Q2

REPORT INFORMATION
  Report Type: Spontaneous
  Country: FR (occurrence: FR)
  Receive Date: 20250204
  Receipt Date: 20250404
  Transmission Date: 20250716
  Serious: Yes (Disabling, Other)
  Sender: ROCHE
  Company Number: FR-ROCHE-10000193446

PATIENT
  Age: 78 Year
  Sex: Male

DRUGS (6)
  1. VABYSMO [Suspect]
     Active Substance: FARICIMAB-SVOA
     Indication: Neovascular age-related macular degeneration
     Route: 050
     Dates: start: 202401
  2. VABYSMO [Suspect]
     Active Substance: FARICIMAB-SVOA
     Indication: Diabetic retinal oedema
     Route: 050
     Dates: start: 202402
  3. VABYSMO [Suspect]
     Active Substance: FARICIMAB-SVOA
     Route: 050
     Dates: start: 202403
  4. VABYSMO [Suspect]
     Active Substance: FARICIMAB-SVOA
     Route: 050
     Dates: start: 202407
  5. VABYSMO [Suspect]
     Active Substance: FARICIMAB-SVOA
     Route: 050
     Dates: start: 202408
  6. VABYSMO [Suspect]
     Active Substance: FARICIMAB-SVOA
     Route: 050
     Dates: start: 20240926

REACTIONS (4)
  - Retinal ischaemia [Recovered/Resolved with Sequelae]
  - Uveitis [Recovered/Resolved with Sequelae]
  - Retinal occlusive vasculitis [Recovered/Resolved with Sequelae]
  - Vitritis [Recovered/Resolved with Sequelae]

NARRATIVE: CASE EVENT DATE: 20240928
